FAERS Safety Report 25609572 (Version 1)
Quarter: 2025Q3

REPORT INFORMATION
  Report Type: Spontaneous
  Country: CN (occurrence: CN)
  Receive Date: 20250728
  Receipt Date: 20250728
  Transmission Date: 20251021
  Serious: Yes (Hospitalization, Other)
  Sender: ALEXION PHARMACEUTICALS
  Company Number: CN-ASTRAZENECA-202507CHN020214CN

PATIENT
  Age: 61 Year
  Sex: Female
  Weight: 54 kg

DRUGS (1)
  1. DAPAGLIFLOZIN [Suspect]
     Active Substance: DAPAGLIFLOZIN
     Indication: Diabetic nephropathy
     Dosage: 5 MILLIGRAM, QD
     Dates: start: 20250612, end: 20250711

REACTIONS (2)
  - Urinary tract infection [Recovering/Resolving]
  - Bacteraemia [Unknown]

NARRATIVE: CASE EVENT DATE: 20250707
